FAERS Safety Report 23564251 (Version 1)
Quarter: 2024Q1

REPORT INFORMATION
  Report Type: Spontaneous
  Country: US (occurrence: US)
  Receive Date: 20240226
  Receipt Date: 20240226
  Transmission Date: 20240410
  Serious: Yes (Hospitalization)
  Sender: FDA-Public Use
  Company Number: US-BIOCON-BCN-2024-000030

PATIENT
  Age: 60 Year
  Sex: Male

DRUGS (1)
  1. PEMETREXED [Suspect]
     Active Substance: PEMETREXED
     Indication: Non-small cell lung cancer metastatic
     Dosage: EVERY THREE WEEKS FOR THE PAST EIGHT MONTHS

REACTIONS (1)
  - Pseudocellulitis [Recovering/Resolving]
